FAERS Safety Report 9436074 (Version 1)
Quarter: 2013Q3

REPORT INFORMATION
  Report Type: Report from Study
  Country: US (occurrence: US)
  Receive Date: 20130801
  Receipt Date: 20130801
  Transmission Date: 20140515
  Serious: Yes (Death, Other)
  Sender: FDA-Public Use
  Company Number: GXBR2013US001474

PATIENT
  Age: 78 Year
  Sex: Male

DRUGS (1)
  1. ENOXAPARIN SODIUM [Suspect]
     Dosage: 80 MG, BID
     Route: 058
     Dates: start: 20130518

REACTIONS (2)
  - Death [Fatal]
  - Lung neoplasm malignant [Unknown]
